FAERS Safety Report 10230660 (Version 3)
Quarter: 2014Q2

REPORT INFORMATION
  Report Type: Spontaneous
  Country: JP (occurrence: JP)
  Receive Date: 20140611
  Receipt Date: 20140612
  Transmission Date: 20141212
  Serious: Yes (Hospitalization)
  Sender: FDA-Public Use
  Company Number: JP-PFIZER INC-2014150631

PATIENT
  Age: 44 Year
  Sex: Female

DRUGS (2)
  1. CHAMPIX [Suspect]
     Indication: NICOTINE DEPENDENCE
     Dosage: 2 MG, 1X/DAY
     Route: 048
  2. DOMPERIDONE [Suspect]
     Indication: NAUSEA
     Dosage: UNK, AS NEEDED
     Route: 048

REACTIONS (3)
  - Neurosis [Unknown]
  - Condition aggravated [Unknown]
  - Nausea [Recovered/Resolved]
